FAERS Safety Report 5827379-8 (Version None)
Quarter: 2008Q3

REPORT INFORMATION
  Report Type: 
  Country: None (occurrence: None)
  Receive Date: 20080730
  Receipt Date: 20080721
  Transmission Date: 20090109
  Serious: Yes (Other)
  Sender: FDA-Public Use
  Company Number: AT-TEVA-174742ISR

PATIENT
  Age: 77 Year
  Sex: Female

DRUGS (7)
  1. FLUOROURACIL [Suspect]
     Indication: GASTRIC CANCER
     Dates: start: 20050301, end: 20050701
  2. FLUOROURACIL [Suspect]
     Dates: start: 20050601
  3. CAPECITABINE [Suspect]
     Indication: GASTRIC CANCER
     Dates: start: 20050701
  4. ETOPOSIDE [Concomitant]
     Dates: start: 20050301, end: 20050601
  5. CALCIUM FOLINATE [Concomitant]
     Dates: start: 20050301, end: 20050701
  6. CALCIUM FOLINATE [Concomitant]
     Dates: start: 20050601
  7. IRINOTECAN HCL [Concomitant]
     Dates: start: 20050601, end: 20050701

REACTIONS (1)
  - CUTANEOUS LUPUS ERYTHEMATOSUS [None]
